FAERS Safety Report 10175043 (Version 1)
Quarter: 2014Q2

REPORT INFORMATION
  Report Type: Spontaneous
  Country: US (occurrence: US)
  Receive Date: 20140515
  Receipt Date: 20140515
  Transmission Date: 20141212
  Serious: Yes (Hospitalization)
  Sender: FDA-Public Use
  Company Number: US-MPIJNJ-2014MPI001417

PATIENT
  Age: 62 Year
  Sex: Male
  Weight: 78.73 kg

DRUGS (9)
  1. VELCADE [Suspect]
     Indication: PLASMA CELL MYELOMA
     Dosage: DAYS 1,4,8,11, EVERY 21 DAYS
     Route: 058
     Dates: start: 20130521, end: 20131001
  2. DEXAMETHASONE [Suspect]
     Dosage: DAYS 1,2,4,5,8,9,11,12 EVERY 21 DAYS
     Route: 048
     Dates: start: 20130521, end: 20131001
  3. PROVENTIL                          /00139501/ [Concomitant]
     Dosage: UNK
     Dates: start: 20130614
  4. NORVASC [Concomitant]
     Dosage: UNK
     Dates: start: 20130719
  5. NEURONTIN [Concomitant]
     Dosage: UNK
     Dates: start: 20130730
  6. XARELTO [Concomitant]
     Dosage: UNK
     Dates: start: 20130703
  7. HUMALOG [Concomitant]
     Dosage: UNK
     Dates: start: 20130722
  8. HYDROCODONE [Concomitant]
     Dosage: UNK
     Dates: start: 20130506
  9. PROVENTIL                          /00139501/ [Concomitant]
     Dosage: UNK
     Dates: start: 20130614

REACTIONS (3)
  - Chronic obstructive pulmonary disease [Recovered/Resolved]
  - Troponin increased [Recovered/Resolved]
  - Neuropathy peripheral [Unknown]
